FAERS Safety Report 6837209-3 (Version None)
Quarter: 2010Q3

REPORT INFORMATION
  Report Type: 
  Country: None (occurrence: None)
  Receive Date: 20100713
  Receipt Date: 20070504
  Transmission Date: 20110219
  Serious: No
  Sender: FDA-Public Use
  Company Number: US-PFIZER INC-2007037149

PATIENT
  Sex: Female
  Weight: 78.93 kg

DRUGS (4)
  1. CHANTIX [Suspect]
     Indication: SMOKING CESSATION THERAPY
     Dates: start: 20070501
  2. CLONIDINE [Concomitant]
     Dates: start: 20040101
  3. LISINOPRIL [Concomitant]
     Dates: start: 20040101
  4. OXYCONTIN [Concomitant]
     Dates: start: 20040101

REACTIONS (1)
  - NAUSEA [None]
